FAERS Safety Report 11213127 (Version 1)
Quarter: 2015Q2

REPORT INFORMATION
  Report Type: Spontaneous
  Country: US (occurrence: US)
  Receive Date: 20150623
  Receipt Date: 20150623
  Transmission Date: 20150821
  Serious: No
  Sender: FDA-Public Use
  Company Number: US-MEDA-2015050021

PATIENT
  Sex: Female

DRUGS (1)
  1. ELESTRIN [Suspect]
     Active Substance: ESTRADIOL

REACTIONS (1)
  - Vaginal haemorrhage [Unknown]
